FAERS Safety Report 7538961-4 (Version None)
Quarter: 2011Q2

REPORT INFORMATION
  Report Type: 
  Country: None (occurrence: None)
  Receive Date: 20110610
  Receipt Date: 20110527
  Transmission Date: 20111010
  Serious: Yes (Hospitalization, Other)
  Sender: FDA-Public Use
  Company Number: US-BAYER-201017553NA

PATIENT
  Age: 20 Year
  Sex: Female
  Weight: 63.492 kg

DRUGS (11)
  1. DARVOCET [Concomitant]
     Indication: PAIN
     Dosage: 2 UNK, UNK
  2. ANTIEMETICS AND ANTINAUSEANTS [Concomitant]
     Indication: VOMITING
  3. ALBUTEROL SULFATE AUTOHALER [Concomitant]
     Indication: ASTHMA
  4. YASMIN [Suspect]
     Indication: ORAL CONTRACEPTION
  5. ALIGN [Concomitant]
  6. YAZ [Suspect]
     Indication: MENSTRUATION IRREGULAR
     Route: 048
     Dates: start: 20080101, end: 20090601
  7. YAZ [Suspect]
     Indication: ORAL CONTRACEPTION
  8. ANTIEMETICS AND ANTINAUSEANTS [Concomitant]
     Indication: NAUSEA
  9. DROSPIRENONE AND ETHINYL ESTRADIOL [Suspect]
     Indication: ORAL CONTRACEPTION
  10. PEPCID [Concomitant]
     Dosage: 20 MG, BID
     Route: 048
  11. PROBIOTICS [Concomitant]
     Dosage: UNK
     Route: 048

REACTIONS (3)
  - ABDOMINAL PAIN [None]
  - PANCREATITIS [None]
  - PAIN [None]
